FAERS Safety Report 21302213 (Version 2)
Quarter: 2022Q4

REPORT INFORMATION
  Report Type: Spontaneous
  Country: US (occurrence: US)
  Receive Date: 20220907
  Receipt Date: 20221003
  Transmission Date: 20230113
  Serious: Yes (Other)
  Sender: FDA-Public Use
  Company Number: US-MEDEXUS PHARMA, INC.-2022MED00346

PATIENT
  Sex: Male
  Weight: 99.773 kg

DRUGS (6)
  1. IXINITY [Suspect]
     Active Substance: COAGULATION FACTOR IX RECOMBINANT HUMAN
     Indication: Factor IX deficiency
     Dosage: 10000 DOSAGE UNITS, 1X/WEEK
     Route: 042
  2. IXINITY [Suspect]
     Active Substance: COAGULATION FACTOR IX RECOMBINANT HUMAN
     Dosage: 10,000 UNITS AND THEN WOULD TAKE 5,000 UNITS A COUPLE OF DAYS AFTERWARD, IF HE HAD A PROCEDURE
     Route: 042
  3. IXINITY [Suspect]
     Active Substance: COAGULATION FACTOR IX RECOMBINANT HUMAN
     Dosage: 10,000 UNITS AND THEN 5,000 UNITS, 1X/DAY
     Route: 042
  4. IXINITY [Suspect]
     Active Substance: COAGULATION FACTOR IX RECOMBINANT HUMAN
     Dosage: 10,000 UNITS AND THEN 5,000 UNITS, EVERY OTHER DAY
     Route: 042
  5. IXINITY [Suspect]
     Active Substance: COAGULATION FACTOR IX RECOMBINANT HUMAN
     Dosage: UNK
     Route: 042
  6. UNSPECIFIED INGREDIENT [Concomitant]
     Active Substance: UNSPECIFIED INGREDIENT

REACTIONS (4)
  - Benign prostatic hyperplasia [Unknown]
  - Central venous catheterisation [Recovered/Resolved]
  - Therapeutic product effect decreased [Recovered/Resolved]
  - Dental care [Unknown]

NARRATIVE: CASE EVENT DATE: 20220101
